FAERS Safety Report 9731119 (Version 1)
Quarter: 2013Q4

REPORT INFORMATION
  Report Type: Spontaneous
  Country: AU (occurrence: AU)
  Receive Date: 20131205
  Receipt Date: 20131205
  Transmission Date: 20140711
  Serious: Yes (Death)
  Sender: FDA-Public Use
  Company Number: AU-MERCK-1311AUS012621

PATIENT
  Age: 49 Year
  Sex: 0

DRUGS (2)
  1. CARBIDOPA (+) LEVODOPA [Suspect]
     Indication: PARKINSON^S DISEASE
     Dosage: CONTROLLED-RELEASE TABLET, DAILY DOSE 1700 MG
     Route: 048
  2. CARBIDOPA (+) LEVODOPA [Suspect]
     Indication: PARKINSON^S DISEASE
     Dosage: STANDARD-RELEASE TABLET, DAILY DOSE 1700 MG
     Route: 048

REACTIONS (2)
  - Disease progression [Fatal]
  - Peripheral sensorimotor neuropathy [Fatal]
